FAERS Safety Report 4723745-2 (Version None)
Quarter: 2005Q3

REPORT INFORMATION
  Report Type: 
  Country: None (occurrence: None)
  Receive Date: 20050720
  Receipt Date: 20050720
  Transmission Date: 20060218
  Serious: Yes (Other)
  Sender: FDA-Public Use
  Company Number: None

PATIENT
  Age: 12 Year
  Sex: Female
  Weight: 55 kg

DRUGS (1)
  1. SILVER SULFADIAZINE [Suspect]
     Indication: BURNS FIRST DEGREE
     Dosage: APPLIED TO BURN
     Dates: start: 20050719

REACTIONS (3)
  - CHILLS [None]
  - PRURITUS [None]
  - RASH [None]
